FAERS Safety Report 8029183-1 (Version None)
Quarter: 2012Q1

REPORT INFORMATION
  Report Type: 
  Country: None (occurrence: None)
  Receive Date: 20120106
  Receipt Date: 20120103
  Transmission Date: 20120608
  Serious: Yes (Death, Other)
  Sender: FDA-Public Use
  Company Number: PHHY2011BR105300

PATIENT
  Age: 88 Year
  Sex: Female

DRUGS (5)
  1. HIDRION [Concomitant]
     Indication: DIURETIC THERAPY
     Dosage: 1 DF(40/100 MG), QD IN THE MORNING
  2. DILTIAZEM HCL [Concomitant]
     Indication: CARDIAC DISORDER
     Dosage: 30 MG, BID
     Dates: start: 20110601
  3. MEMANTINE HYDROCHLORIDE [Concomitant]
     Indication: DEPRESSION
     Dosage: 2 DF(10 MG), DAILY
  4. EXFORGE [Suspect]
     Indication: HYPERTENSION
     Dosage: 1 DF, (320/5MG) QD IN THE MORNING
     Dates: start: 20110901
  5. LOSARTAN POTASSIUM [Concomitant]
     Indication: CARDIAC DISORDER
     Dosage: 5 MG, BID

REACTIONS (8)
  - DRUG INTOLERANCE [None]
  - MALAISE [None]
  - RENAL DISORDER [None]
  - OEDEMA PERIPHERAL [None]
  - CARDIOMEGALY [None]
  - DYSURIA [None]
  - GAIT DISTURBANCE [None]
  - ERYTHEMA [None]
